FAERS Safety Report 22830358 (Version 3)
Quarter: 2023Q4

REPORT INFORMATION
  Report Type: Spontaneous
  Country: US (occurrence: US)
  Receive Date: 20230817
  Receipt Date: 20231214
  Transmission Date: 20240110
  Serious: No
  Sender: FDA-Public Use
  Company Number: US-SA-2023SA217406

PATIENT
  Age: 66 Year
  Sex: Male

DRUGS (2)
  1. DUPIXENT [Suspect]
     Active Substance: DUPILUMAB
     Indication: Nasal polyps
     Dosage: 300 MG, QOW
     Route: 058
     Dates: start: 20230714, end: 202311
  2. EPHRINE [PHENYLEPHRINE HYDROCHLORIDE] [Concomitant]

REACTIONS (6)
  - Anosmia [Unknown]
  - Condition aggravated [Unknown]
  - Nasal congestion [Recovered/Resolved]
  - Condition aggravated [Recovered/Resolved]
  - Sensitivity to weather change [Recovered/Resolved]
  - Middle insomnia [Unknown]

NARRATIVE: CASE EVENT DATE: 20230101
